FAERS Safety Report 6571776-2 (Version None)
Quarter: 2010Q1

REPORT INFORMATION
  Report Type: 
  Country: None (occurrence: None)
  Receive Date: 20100205
  Receipt Date: 20100126
  Transmission Date: 20100710
  Serious: Yes (Hospitalization)
  Sender: FDA-Public Use
  Company Number: US-AMGEN-US142678

PATIENT
  Sex: Female
  Weight: 98.2 kg

DRUGS (4)
  1. ROMIPLOSTIM [Suspect]
     Indication: IDIOPATHIC THROMBOCYTOPENIC PURPURA
     Route: 058
     Dates: start: 20041007, end: 20050712
  2. AMICAR [Concomitant]
     Route: 048
  3. IRON [Concomitant]
     Route: 048
  4. YASMIN [Concomitant]
     Dates: end: 20050301

REACTIONS (2)
  - ANAEMIA [None]
  - VAGINAL HAEMORRHAGE [None]
